FAERS Safety Report 7556218-2 (Version None)
Quarter: 2011Q2

REPORT INFORMATION
  Report Type: 
  Country: None (occurrence: None)
  Receive Date: 20110615
  Receipt Date: 20110615
  Transmission Date: 20111010
  Serious: Yes (Other)
  Sender: FDA-Public Use
  Company Number: None

PATIENT
  Age: 56 Year
  Sex: Male
  Weight: 70.3075 kg

DRUGS (1)
  1. LEVAQUIN [Suspect]
     Indication: BACTERIAL INFECTION
     Dosage: 500MG DAILY PO
     Route: 048
     Dates: start: 20110607, end: 20110608

REACTIONS (8)
  - HYPERSENSITIVITY [None]
  - RASH [None]
  - PAIN [None]
  - HEADACHE [None]
  - TENDON PAIN [None]
  - ARTHRALGIA [None]
  - DIZZINESS [None]
  - PARAESTHESIA [None]
